FAERS Safety Report 22094618 (Version 1)
Quarter: 2023Q1

REPORT INFORMATION
  Report Type: Report from Study
  Country: GB (occurrence: GB)
  Receive Date: 20230314
  Receipt Date: 20230314
  Transmission Date: 20230418
  Serious: Yes (Death, Life-Threatening, Other)
  Sender: FDA-Public Use
  Company Number: GB-SHIRE-GB201805736

PATIENT
  Age: 83 Year
  Sex: Male

DRUGS (1)
  1. HYDROCORTISONE [Suspect]
     Active Substance: HYDROCORTISONE
     Indication: Adrenal insufficiency
     Dosage: UNK;
     Route: 050
     Dates: start: 2003

REACTIONS (1)
  - Death [Fatal]

NARRATIVE: CASE EVENT DATE: 20140409
